FAERS Safety Report 5983332-5 (Version None)
Quarter: 2008Q4

REPORT INFORMATION
  Report Type: 
  Country: None (occurrence: None)
  Receive Date: 20081208
  Receipt Date: 20081124
  Transmission Date: 20090506
  Serious: Yes (Death, Hospitalization, Other)
  Sender: FDA-Public Use
  Company Number: US-AVENTIS-200821069GDDC

PATIENT
  Age: 65 Year
  Sex: Male

DRUGS (13)
  1. GLIMEPIRIDE [Suspect]
     Route: 048
     Dates: end: 20051021
  2. LENALIDOMIDE [Suspect]
     Indication: MULTIPLE MYELOMA
     Route: 048
     Dates: start: 20051014, end: 20051019
  3. DEXAMETHASONE [Suspect]
     Indication: MULTIPLE MYELOMA
     Route: 048
     Dates: start: 20051014, end: 20051021
  4. TYLENOL (CAPLET) [Concomitant]
  5. AREDIA                             /00729902/ [Concomitant]
  6. TRICOR                             /00090101/ [Concomitant]
     Dosage: DOSE QUANTITY: 1
     Route: 048
  7. OXYCONTIN [Concomitant]
     Dosage: DOSE QUANTITY: 1
     Route: 048
  8. OXYCONTIN [Concomitant]
     Route: 048
  9. DIFLUCAN [Concomitant]
     Dosage: DOSE QUANTITY: 1
     Route: 048
  10. BACTRIM [Concomitant]
     Dosage: DOSE QUANTITY: 1
     Route: 048
  11. PROTONIX [Concomitant]
     Dosage: DOSE QUANTITY: 1
     Route: 048
  12. ATENOLOL [Concomitant]
     Indication: HYPERTENSION
     Route: 048
     Dates: start: 20000101, end: 20051021
  13. ASPIRIN [Concomitant]

REACTIONS (5)
  - BACTERAEMIA [None]
  - GASTROINTESTINAL HAEMORRHAGE [None]
  - HYPOGLYCAEMIA [None]
  - MULTIPLE MYELOMA [None]
  - TROPONIN INCREASED [None]
